FAERS Safety Report 6494045-8 (Version None)
Quarter: 2009Q4

REPORT INFORMATION
  Report Type: 
  Country: None (occurrence: None)
  Receive Date: 20091214
  Receipt Date: 20081215
  Transmission Date: 20100525
  Serious: No
  Sender: FDA-Public Use
  Company Number: US-BRISTOL-MYERS SQUIBB COMPANY-14443543

PATIENT
  Age: 38 Year

DRUGS (2)
  1. ABILIFY [Suspect]
     Indication: BIPOLAR DISORDER
     Dosage: PATIENT WAS ON ABILIFY FOR 4 WEEKS, STOPPED FOR 2 WEEKS, THEN WENT BACK ON FOR 4 WEEKS
  2. CELEXA [Concomitant]

REACTIONS (1)
  - WEIGHT INCREASED [None]
